FAERS Safety Report 22610376 (Version 1)
Quarter: 2023Q2

REPORT INFORMATION
  Report Type: Spontaneous
  Country: CZ (occurrence: None)
  Receive Date: 20230616
  Receipt Date: 20230616
  Transmission Date: 20230722
  Serious: Yes (Other)
  Sender: FDA-Public Use
  Company Number: 2023A139561

PATIENT
  Sex: Female

DRUGS (1)
  1. FULVESTRANT [Suspect]
     Active Substance: FULVESTRANT
     Dosage: 4.4MG/KG UNKNOWN
     Route: 030

REACTIONS (2)
  - Malignant neoplasm progression [Unknown]
  - Transaminases increased [Unknown]
